FAERS Safety Report 16183711 (Version 2)
Quarter: 2019Q2

REPORT INFORMATION
  Report Type: Spontaneous
  Country: US (occurrence: US)
  Receive Date: 20190411
  Receipt Date: 20190508
  Transmission Date: 20190711
  Serious: No
  Sender: FDA-Public Use
  Company Number: US-BIOGEN-2019BI00706394

PATIENT
  Sex: Female

DRUGS (4)
  1. AVONEX [Suspect]
     Active Substance: INTERFERON BETA-1A
     Route: 065
     Dates: start: 20170426
  2. AVONEX [Suspect]
     Active Substance: INTERFERON BETA-1A
     Route: 065
     Dates: start: 20150722, end: 2017
  3. AVONEX [Suspect]
     Active Substance: INTERFERON BETA-1A
     Indication: MULTIPLE SCLEROSIS
     Dosage: 1/4 DOSE WEEK 1; 1/2 DOSE WEEK 2; 3/4 DOSE WEEK 3; FULL DOSE WEEK 4
     Route: 030
     Dates: start: 201902, end: 201902
  4. AVONEX [Suspect]
     Active Substance: INTERFERON BETA-1A
     Route: 065
     Dates: start: 20170519, end: 20181001

REACTIONS (3)
  - Multiple sclerosis [Not Recovered/Not Resolved]
  - Influenza like illness [Unknown]
  - Pruritus [Unknown]
